FAERS Safety Report 16872877 (Version 1)
Quarter: 2019Q4

REPORT INFORMATION
  Report Type: Spontaneous
  Country: US (occurrence: US)
  Receive Date: 20191001
  Receipt Date: 20191001
  Transmission Date: 20200122
  Serious: No
  Sender: FDA-Public Use
  Company Number: US-GLAXOSMITHKLINE-US2019174127

PATIENT
  Age: 73 Year
  Sex: Male

DRUGS (2)
  1. ABREVA [Suspect]
     Active Substance: DOCOSANOL
     Indication: ORAL HERPES
     Dosage: UNK (USED IT FOR FOUR WEEKS FOR 4 TO 5 TIMES A DAY)
     Dates: start: 20190816
  2. ABREVA [Suspect]
     Active Substance: DOCOSANOL
     Dosage: UNK (USED IT FOR FOUR WEEKS)
     Dates: start: 20190816

REACTIONS (4)
  - Off label use [Unknown]
  - Inappropriate schedule of product administration [Unknown]
  - Wrong technique in product usage process [Unknown]
  - Incorrect product administration duration [Unknown]
